FAERS Safety Report 18711120 (Version 1)
Quarter: 2021Q1

REPORT INFORMATION
  Report Type: Spontaneous
  Country: US (occurrence: US)
  Receive Date: 20210106
  Receipt Date: 20210106
  Transmission Date: 20210419
  Serious: Yes (Hospitalization)
  Sender: FDA-Public Use
  Company Number: None

PATIENT
  Age: 93 Year
  Sex: Female

DRUGS (1)
  1. BAMLANIVIMAB. [Suspect]
     Active Substance: BAMLANIVIMAB
     Indication: COVID-19
     Dosage: ?          OTHER FREQUENCY:ONCE;?
     Route: 041

REACTIONS (6)
  - Hypokalaemia [None]
  - Condition aggravated [None]
  - Chest discomfort [None]
  - Hyponatraemia [None]
  - Atrial fibrillation [None]
  - Infusion related reaction [None]

NARRATIVE: CASE EVENT DATE: 20201215
